FAERS Safety Report 9126488 (Version 1)
Quarter: 2013Q1

REPORT INFORMATION
  Report Type: Spontaneous
  Country: US (occurrence: US)
  Receive Date: 20130228
  Receipt Date: 20130228
  Transmission Date: 20140127
  Serious: No
  Sender: FDA-Public Use
  Company Number: 2009BI004793

PATIENT
  Age: 51 Year
  Sex: Female

DRUGS (4)
  1. AVONEX [Suspect]
     Indication: RECTAL DISCHARGE
     Route: 030
     Dates: start: 20080613
  2. AVONEX [Suspect]
     Indication: RECTAL DISCHARGE
     Route: 030
     Dates: start: 201212
  3. PROCTOFOAM [Concomitant]
     Indication: PROCTITIS
     Route: 054
     Dates: start: 200802
  4. SYNTHROID [Concomitant]
     Indication: HYPOTHYROIDISM
     Route: 048
     Dates: start: 1993

REACTIONS (4)
  - Rectal haemorrhage [Not Recovered/Not Resolved]
  - Polyp [Recovered/Resolved]
  - Large intestine polyp [Unknown]
  - Rectal discharge [Not Recovered/Not Resolved]
